FAERS Safety Report 16461318 (Version 1)
Quarter: 2019Q2

REPORT INFORMATION
  Report Type: Other
  Country: IT (occurrence: IT)
  Receive Date: 20190621
  Receipt Date: 20190621
  Transmission Date: 20190711
  Serious: Yes (Other)
  Sender: FDA-Public Use
  Company Number: IT-LUPIN PHARMACEUTICALS INC.-2019-03729

PATIENT
  Age: 31 Year
  Sex: Female

DRUGS (5)
  1. ZONEGRAN [Suspect]
     Active Substance: ZONISAMIDE
     Indication: PARTIAL SEIZURES
     Dosage: 400 MILLIGRAM, QD
     Route: 048
  2. LEVETIRACETAM. [Suspect]
     Active Substance: LEVETIRACETAM
     Indication: PARTIAL SEIZURES
     Dosage: 300 MILLIGRAM, QD
     Route: 048
  3. MYSOLINE [Suspect]
     Active Substance: PRIMIDONE
     Indication: PARTIAL SEIZURES
     Dosage: 500 MILLIGRAM, QD
     Route: 048
     Dates: start: 20180704
  4. TEGRETOL [Suspect]
     Active Substance: CARBAMAZEPINE
     Indication: PARTIAL SEIZURES
     Dosage: 600 MILLIGRAM, QD
     Route: 048
     Dates: start: 20160901
  5. TOPIRAMATE TABLETS [Suspect]
     Active Substance: TOPIRAMATE
     Indication: PARTIAL SEIZURES
     Dosage: 200 MILLIGRAM, QD (TABLET)
     Route: 048
     Dates: start: 20161011

REACTIONS (2)
  - Epilepsy [Not Recovered/Not Resolved]
  - Drug resistance [Unknown]

NARRATIVE: CASE EVENT DATE: 20190211
